FAERS Safety Report 7495303-0 (Version None)
Quarter: 2011Q2

REPORT INFORMATION
  Report Type: 
  Country: None (occurrence: None)
  Receive Date: 20110523
  Receipt Date: 20110518
  Transmission Date: 20111010
  Serious: Yes (Other)
  Sender: FDA-Public Use
  Company Number: CA-BRISTOL-MYERS SQUIBB COMPANY-15712227

PATIENT
  Age: 16 Year
  Sex: Male

DRUGS (1)
  1. CEPHALEXIN [Suspect]
     Indication: PYOGENIC GRANULOMA
     Route: 048

REACTIONS (1)
  - DRUG INEFFECTIVE [None]
